FAERS Safety Report 10982906 (Version 1)
Quarter: 2015Q2

REPORT INFORMATION
  Report Type: Spontaneous
  Country: CA (occurrence: CA)
  Receive Date: 20150403
  Receipt Date: 20150403
  Transmission Date: 20150821
  Serious: Yes (Life-Threatening, Hospitalization)
  Sender: FDA-Public Use
  Company Number: CA-TEVA-551961ACC

PATIENT
  Age: 68 Year
  Sex: Female

DRUGS (2)
  1. NAPROXEN. [Suspect]
     Active Substance: NAPROXEN
     Indication: PRODUCT USED FOR UNKNOWN INDICATION
     Dosage: UNKNOWN FORM STRENGTH
     Route: 065
  2. PRADAXA [Suspect]
     Active Substance: DABIGATRAN ETEXILATE MESYLATE
     Indication: ATRIAL FIBRILLATION
     Dosage: UNKNOWN FORM STRENGTH
     Route: 065

REACTIONS (6)
  - Cardiac failure congestive [Unknown]
  - Bronchial haemorrhage [Unknown]
  - Epistaxis [Unknown]
  - Hypotension [Unknown]
  - Renal failure [Unknown]
  - Gastrointestinal haemorrhage [Unknown]
